FAERS Safety Report 10172258 (Version 3)
Quarter: 2014Q2

REPORT INFORMATION
  Report Type: Report from Study
  Country: AU (occurrence: AU)
  Receive Date: 20140515
  Receipt Date: 20140620
  Transmission Date: 20141212
  Serious: No
  Sender: FDA-Public Use
  Company Number: AU-BIOGENIDEC-2014BI042993

PATIENT
  Age: 65 Year
  Sex: Female

DRUGS (4)
  1. TYSABRI [Suspect]
     Indication: RELAPSING-REMITTING MULTIPLE SCLEROSIS
     Route: 042
     Dates: start: 20100130, end: 20100717
  2. TEGRETOL [Concomitant]
     Indication: TRIGEMINAL NEURALGIA
     Dates: start: 20140329
  3. GAPAPENTIN [Concomitant]
     Indication: NEURALGIA
     Dates: start: 20140329
  4. GAPAPENTIN [Concomitant]
     Indication: TRIGEMINAL NEURALGIA
     Dates: start: 20140329

REACTIONS (1)
  - Drug ineffective [Unknown]
